FAERS Safety Report 6095414-0 (Version None)
Quarter: 2009Q1

REPORT INFORMATION
  Report Type: 
  Country: None (occurrence: None)
  Receive Date: 20090227
  Receipt Date: 20080327
  Transmission Date: 20090719
  Serious: No
  Sender: FDA-Public Use
  Company Number: A0717849A

PATIENT
  Age: 22 Year
  Sex: Female

DRUGS (5)
  1. LAMICTAL [Suspect]
     Indication: MOOD SWINGS
     Dosage: 350MG PER DAY
     Route: 048
     Dates: start: 20071101
  2. CLOZARIL [Suspect]
     Dosage: 400MG PER DAY
     Dates: start: 20070301, end: 20080319
  3. EFFEXOR XR [Concomitant]
  4. ZOLOFT [Concomitant]
  5. NAVANE [Concomitant]

REACTIONS (1)
  - INSOMNIA [None]
